FAERS Safety Report 8765946 (Version 7)
Quarter: 2013Q2

REPORT INFORMATION
  Report Type: Spontaneous
  Country: US (occurrence: US)
  Receive Date: 20120904
  Receipt Date: 20130520
  Transmission Date: 20140414
  Serious: Yes (Hospitalization, Disabling, Other)
  Sender: FDA-Public Use
  Company Number: US-009507513-1208USA012072

PATIENT
  Sex: Female
  Weight: 59.86 kg

DRUGS (4)
  1. FOSAMAX [Suspect]
     Indication: OSTEOPOROSIS PROPHYLAXIS
     Dosage: UNK, QD
     Route: 048
     Dates: start: 199801, end: 200607
  2. FOSAMAX [Suspect]
     Indication: BONE DENSITY DECREASED
     Dosage: 70 MG, QW
     Route: 048
     Dates: start: 1998, end: 200607
  3. ALENDRONATE SODIUM [Suspect]
     Dosage: 70 MG, QW
     Route: 048
  4. GLIPIZIDE [Concomitant]
     Indication: DIABETES MELLITUS
     Dosage: UNK
     Route: 048
     Dates: start: 1990, end: 201211

REACTIONS (30)
  - Femur fracture [Recovering/Resolving]
  - Open reduction of fracture [Unknown]
  - Vascular calcification [Unknown]
  - Bronchitis [Recovering/Resolving]
  - Dehydration [Recovered/Resolved]
  - Pneumonia [Unknown]
  - Pollakiuria [Unknown]
  - Weight decreased [Unknown]
  - Orthopnoea [Unknown]
  - Apnoea [Unknown]
  - Dyspnoea paroxysmal nocturnal [Unknown]
  - Cardiac murmur [Unknown]
  - Pleural fibrosis [Unknown]
  - Gout [Unknown]
  - Arteriosclerosis coronary artery [Unknown]
  - Spinal osteoarthritis [Unknown]
  - Aortic arteriosclerosis [Unknown]
  - Coronary artery disease [Unknown]
  - Asthma [Unknown]
  - Chronic obstructive pulmonary disease [Unknown]
  - Aortic calcification [Unknown]
  - Exostosis [Unknown]
  - Intervertebral disc degeneration [Unknown]
  - Spinal osteoarthritis [Unknown]
  - Spinal compression fracture [Unknown]
  - Osteopenia [Unknown]
  - Constipation [Unknown]
  - Gastrooesophageal reflux disease [Unknown]
  - Abdominal pain [Unknown]
  - Oedema peripheral [Unknown]
